FAERS Safety Report 7701558-7 (Version None)
Quarter: 2011Q3

REPORT INFORMATION
  Report Type: 
  Country: None (occurrence: None)
  Receive Date: 20110822
  Receipt Date: 20110811
  Transmission Date: 20111222
  Serious: Yes (Death)
  Sender: FDA-Public Use
  Company Number: CH-SANOFI-AVENTIS-2011SA051657

PATIENT
  Age: 78 Year
  Sex: Female
  Weight: 119 kg

DRUGS (6)
  1. MULTAQ [Suspect]
     Indication: ATRIAL FIBRILLATION
     Route: 048
     Dates: start: 20110630, end: 20110701
  2. MULTAQ [Suspect]
     Indication: ATRIAL FLUTTER
     Route: 048
     Dates: start: 20110630, end: 20110701
  3. MARCOUMAR [Concomitant]
     Indication: ATRIAL FLUTTER
     Route: 048
  4. MARCOUMAR [Concomitant]
     Indication: ATRIAL FIBRILLATION
     Route: 048
  5. ATACAND [Concomitant]
     Indication: ESSENTIAL HYPERTENSION
     Route: 065
  6. AMLODIPINE [Concomitant]
     Route: 048

REACTIONS (1)
  - BRADYCARDIA [None]
